FAERS Safety Report 5724147-2 (Version None)
Quarter: 2008Q2

REPORT INFORMATION
  Report Type: 
  Country: None (occurrence: None)
  Receive Date: 20080430
  Receipt Date: 20080421
  Transmission Date: 20081010
  Serious: Yes (Hospitalization, Other)
  Sender: FDA-Public Use
  Company Number: US-ABBOTT-08P-163-0448247-00

PATIENT
  Sex: Male

DRUGS (2)
  1. ADVICOR [Suspect]
     Indication: HYPERLIPIDAEMIA
     Route: 048
     Dates: start: 20080201
  2. ADVICOR [Suspect]
     Dosage: DOSE INCREASED
     Route: 048
     Dates: end: 20080409

REACTIONS (12)
  - CHILLS [None]
  - CHROMATURIA [None]
  - FAECES PALE [None]
  - HEPATIC INFILTRATION EOSINOPHILIC [None]
  - HEPATIC NECROSIS [None]
  - HEPATITIS [None]
  - HEPATITIS ACUTE [None]
  - HEPATITIS C ANTIBODY POSITIVE [None]
  - JAUNDICE [None]
  - NAUSEA [None]
  - PYREXIA [None]
  - VOMITING [None]
